FAERS Safety Report 7526556-8 (Version None)
Quarter: 2011Q2

REPORT INFORMATION
  Report Type: 
  Country: None (occurrence: None)
  Receive Date: 20110606
  Receipt Date: 20110524
  Transmission Date: 20111010
  Serious: Yes (Hospitalization, Other)
  Sender: FDA-Public Use
  Company Number: US-ELI_LILLY_AND_COMPANY-US201008000578

PATIENT
  Sex: Female
  Weight: 48.526 kg

DRUGS (5)
  1. FORTEO [Suspect]
     Dosage: 20 UG, QD
     Route: 058
  2. ZOLOFT [Concomitant]
  3. FORTEO [Suspect]
     Dosage: 20 UG, DAILY (1/D)
     Route: 058
  4. XANAX [Concomitant]
  5. FORTEO [Suspect]
     Indication: OSTEOPOROSIS
     Dosage: 20 UG, DAILY (1/D)
     Route: 058
     Dates: start: 20100501, end: 20100909

REACTIONS (24)
  - TREMOR [None]
  - CONTUSION [None]
  - PRODUCT TASTE ABNORMAL [None]
  - DIZZINESS [None]
  - MUSCULAR WEAKNESS [None]
  - WRIST FRACTURE [None]
  - BONE DISORDER [None]
  - MYOCARDIAL INFARCTION [None]
  - FOOT FRACTURE [None]
  - VOMITING [None]
  - GAIT DISTURBANCE [None]
  - MALAISE [None]
  - ASTHENIA [None]
  - CARDIAC FAILURE CONGESTIVE [None]
  - LOSS OF CONSCIOUSNESS [None]
  - FEELING ABNORMAL [None]
  - HAEMORRHAGE [None]
  - MEMORY IMPAIRMENT [None]
  - BONE PAIN [None]
  - IMPAIRED HEALING [None]
  - FALL [None]
  - DIARRHOEA [None]
  - NAUSEA [None]
  - OSTEOMYELITIS [None]
